FAERS Safety Report 6982633-1 (Version None)
Quarter: 2010Q3

REPORT INFORMATION
  Report Type: 
  Country: None (occurrence: None)
  Receive Date: 20100914
  Receipt Date: 20100222
  Transmission Date: 20110219
  Serious: Yes (Other)
  Sender: FDA-Public Use
  Company Number: US-PFIZER INC-2010025346

PATIENT
  Sex: Female

DRUGS (1)
  1. LYRICA [Suspect]
     Indication: FIBROMYALGIA
     Dosage: 50 MG, 3X/DAY

REACTIONS (5)
  - AGITATION [None]
  - PAIN [None]
  - PRURITUS GENERALISED [None]
  - RASH [None]
  - WEIGHT INCREASED [None]
